FAERS Safety Report 14101453 (Version 3)
Quarter: 2018Q3

REPORT INFORMATION
  Report Type: Spontaneous
  Country: US (occurrence: US)
  Receive Date: 20171018
  Receipt Date: 20180806
  Transmission Date: 20181010
  Serious: Yes (Hospitalization)
  Sender: FDA-Public Use
  Company Number: US-PFIZER INC-2017446214

PATIENT
  Age: 71 Year
  Sex: Female
  Weight: 61.23 kg

DRUGS (6)
  1. LIPITOR [Concomitant]
     Active Substance: ATORVASTATIN CALCIUM
     Indication: BLOOD CHOLESTEROL INCREASED
     Dosage: 20 MG, DAILY (20MG TABLET EVERY NIGHT BY MOUTH)
     Route: 048
  2. PREMARIN [Suspect]
     Active Substance: ESTROGENS, CONJUGATED
     Indication: VAGINAL HAEMORRHAGE
     Dosage: 0.5 G, 2X/WEEK(0.5G TWO TIMES A WEEK, WEDNESDAY AND SUNDAY VAGINALLY)
     Route: 067
     Dates: start: 2008
  3. VITAMIN D3 [Concomitant]
     Active Substance: CHOLECALCIFEROL
     Indication: NUTRITIONAL SUPPLEMENTATION
     Dosage: 400 IU, DAILY (400 UNITS EVERY NIGHT)
     Route: 048
     Dates: start: 2016
  4. PREMARIN [Suspect]
     Active Substance: ESTROGENS, CONJUGATED
     Indication: VULVOVAGINAL DRYNESS
     Dosage: 0.5 G, UNK (THREE TIMES A WEEK)
     Route: 067
  5. PREMARIN [Suspect]
     Active Substance: ESTROGENS, CONJUGATED
     Indication: ATROPHIC VULVOVAGINITIS
     Dosage: 0.5 G, 2X/WEEK (WENT BACK TO 2 TIMES A WEEK)
     Route: 067
  6. ASPIRIN. [Concomitant]
     Active Substance: ASPIRIN
     Indication: CARDIAC DISORDER
     Dosage: 81 MG, DAILY (81MG TABLET EVERY NIGHT BY MOUTH)
     Route: 048
     Dates: start: 2016

REACTIONS (3)
  - Contraindicated product administered [Unknown]
  - Vaginal prolapse [Recovered/Resolved]
  - Drug ineffective [Recovered/Resolved]

NARRATIVE: CASE EVENT DATE: 201612
